FAERS Safety Report 10659740 (Version 8)
Quarter: 2015Q1

REPORT INFORMATION
  Report Type: Spontaneous
  Country: JP (occurrence: JP)
  Receive Date: 20141217
  Receipt Date: 20150121
  Transmission Date: 20150720
  Serious: Yes (Death, Life-Threatening, Hospitalization, Other)
  Sender: FDA-Public Use
  Company Number: JP-PFIZER INC-2014343829

PATIENT
  Age: 85 Year
  Sex: Female
  Weight: 37.9 kg

DRUGS (81)
  1. ISOTONIC SODIUM CHLORIDE [Concomitant]
     Active Substance: SODIUM CHLORIDE
     Dosage: 1 VIAL BID
     Dates: start: 20141119, end: 20141121
  2. FAMOTIDINE ^NISSIN^ [Concomitant]
     Dosage: 1 TUBE
     Dates: start: 20141201
  3. ELEMENMIC [Concomitant]
     Active Substance: CUPRIC SULFATE\FERRIC CHLORIDE\MANGANESE CHLORIDE\POTASSIUM IODIDE\ZINC SULFATE
     Dosage: UNK
     Dates: start: 20141127, end: 20141201
  4. SOLITA-T NO.1 [Concomitant]
     Dosage: 1 VIAL
     Dates: start: 20141115, end: 20141118
  5. INTRALIPOS [Concomitant]
     Active Substance: SOYBEAN OIL
     Dosage: 1 DF
     Dates: start: 20141201, end: 20141201
  6. OTSUKA GLUCOSE [Concomitant]
     Dosage: 2 DF, UNK
     Dates: start: 20141127, end: 20141128
  7. PENTCILLIN [Concomitant]
     Active Substance: PIPERACILLIN SODIUM
     Dosage: 1 VIAL QD
     Dates: start: 20141202, end: 20141202
  8. FOSPHENYTOIN SODIUM. [Suspect]
     Active Substance: FOSPHENYTOIN SODIUM
     Dosage: 375 MG, DAILY
     Route: 042
     Dates: start: 20141116, end: 20141201
  9. LASIX [Concomitant]
     Active Substance: FUROSEMIDE
     Dosage: 0.5 VIAL
     Dates: start: 20141201, end: 20141215
  10. LAXOBERON [Concomitant]
     Active Substance: SODIUM PICOSULFATE
     Indication: CONSTIPATION
     Dosage: 2 DF BEFORE SLEEP
     Route: 048
     Dates: start: 20141020, end: 20141020
  11. LANSOPRAZOLE. [Concomitant]
     Active Substance: LANSOPRAZOLE
     Dosage: 1 DF, 1X/DAY
     Route: 048
     Dates: start: 20141022, end: 20141104
  12. VALERIN [Concomitant]
     Active Substance: VALPROATE SODIUM
     Dosage: 16 ML, 2X/DAY
     Route: 048
     Dates: start: 20141202
  13. OMEPRAZOLE. [Concomitant]
     Active Substance: OMEPRAZOLE
     Dosage: 1 VIAL BID
     Dates: start: 20141016, end: 20141021
  14. NEOPHAGEN [Concomitant]
     Active Substance: GLYCYRRHIZIN
     Dosage: 2 TUBES
     Dates: start: 20141202
  15. OTSUKA GLUCOSE [Concomitant]
     Dosage: 1 DF, UNK
     Dates: start: 20141126
  16. ALEVIATIN [Concomitant]
     Active Substance: PHENYTOIN SODIUM
     Dosage: 200 MG, 2X/DAY
     Route: 048
     Dates: start: 20141021, end: 20141030
  17. ALEVIATIN [Concomitant]
     Active Substance: PHENYTOIN SODIUM
     Dosage: 200 MG, 2X/DAY
     Route: 048
     Dates: start: 20141031, end: 20141106
  18. CEFMETAZON [Concomitant]
     Active Substance: CEFMETAZOLE SODIUM
     Dosage: 1 VIAL BID
     Dates: start: 20141105, end: 20141109
  19. OMEPRAZOLE. [Concomitant]
     Active Substance: OMEPRAZOLE
     Dosage: 1 VIAL BID
     Dates: start: 20141110, end: 20141114
  20. FAMOTIDINE ^NISSIN^ [Concomitant]
     Dosage: UNK
     Dates: start: 20141031, end: 20141101
  21. VITAJECT [Concomitant]
     Active Substance: CYANOCOBALAMIN\PYRIDOXAMINE HYDROCHLORIDE\THIAMINE HYDROCHLORIDE
     Dosage: UNK
     Dates: start: 20141127, end: 20141201
  22. OTSUKA NORMAL SALINE [Concomitant]
     Dosage: 1 DF
     Dates: start: 20141210, end: 20141210
  23. ISOTONIC SODIUM CHLORIDE [Concomitant]
     Active Substance: SODIUM CHLORIDE
     Dosage: 1 VIAL
     Dates: start: 20141201, end: 20141201
  24. KCL [Concomitant]
     Active Substance: POTASSIUM CHLORIDE
     Dosage: 0.5 DF, 2X/DAY
     Dates: start: 20141018, end: 20141104
  25. VITAJECT [Concomitant]
     Active Substance: CYANOCOBALAMIN\PYRIDOXAMINE HYDROCHLORIDE\THIAMINE HYDROCHLORIDE
     Dosage: 1 KIT
     Dates: start: 20141105, end: 20141105
  26. VITAJECT [Concomitant]
     Active Substance: CYANOCOBALAMIN\PYRIDOXAMINE HYDROCHLORIDE\THIAMINE HYDROCHLORIDE
     Dosage: 1 KIT
     Dates: start: 20141106, end: 20141112
  27. VITAJECT [Concomitant]
     Active Substance: CYANOCOBALAMIN\PYRIDOXAMINE HYDROCHLORIDE\THIAMINE HYDROCHLORIDE
     Dosage: 1 KIT
     Dates: start: 20141201
  28. MEDLENIK [Concomitant]
     Dosage: 1 TUBE
     Dates: start: 20141106, end: 20141111
  29. CEFLONIC [Concomitant]
     Active Substance: CEFOPERAZONE SODIUM\SULBACTAM SODIUM
     Dosage: 2 VIAL BID
     Dates: start: 20141110, end: 20141114
  30. ELEMENMIC [Concomitant]
     Active Substance: CUPRIC SULFATE\FERRIC CHLORIDE\MANGANESE CHLORIDE\POTASSIUM IODIDE\ZINC SULFATE
     Dosage: 1 TUBE
     Dates: start: 20141112, end: 20141112
  31. CEFEPIME DIHYDROCHOLORIDE [Concomitant]
     Dosage: 1 VIAL BID
     Dates: start: 20141119, end: 20141121
  32. INTRALIPOS [Concomitant]
     Active Substance: SOYBEAN OIL
     Dosage: 1 DF, UNK
     Dates: start: 20141129
  33. OTSUKA GLUCOSE [Concomitant]
     Dosage: 1 DF, UNK
     Dates: start: 20141129
  34. OTSUKA GLUCOSE [Concomitant]
     Dosage: 1 DF, UNK
     Dates: start: 20141129
  35. TULOBUTEROL [Concomitant]
     Active Substance: TULOBUTEROL
     Dosage: 1 DF
     Dates: start: 20141020, end: 20141120
  36. GLUCOSE H [Concomitant]
     Dosage: 0.5 KIT BID
     Dates: start: 20141110, end: 20141114
  37. GLUCOSE H [Concomitant]
     Dosage: 1 DF, UNK
     Dates: start: 20141206, end: 20141212
  38. KCL [Concomitant]
     Active Substance: POTASSIUM CHLORIDE
     Dosage: 1 KIT
     Dates: start: 20141106, end: 20141126
  39. FESIN [Concomitant]
     Active Substance: IRON SUCROSE
     Dosage: 1 TUBE
     Dates: start: 20141017, end: 20141023
  40. SOLDEM 1 [Concomitant]
     Dosage: 1 DF
     Dates: start: 20141022, end: 20141105
  41. FAMOTIDINE ^NISSIN^ [Concomitant]
     Dosage: 1 TUBE
     Dates: start: 20141101, end: 20141105
  42. NEOPAREN [Concomitant]
     Active Substance: AMINO ACIDS\DEXTROSE\ELECTROLYTES NOS
     Dosage: 1 KIT
     Dates: start: 20141105, end: 20141105
  43. SOLDEM 3 [Concomitant]
     Dosage: 1 DF
     Dates: start: 20141105, end: 20141105
  44. HEPAFLUSH [Concomitant]
     Dosage: 1 VALUE
     Dates: start: 20141125
  45. OTSUKA GLUCOSE [Concomitant]
     Dosage: 1 DF, UNK
     Dates: start: 20141121, end: 20141124
  46. PENTCILLIN [Concomitant]
     Active Substance: PIPERACILLIN SODIUM
     Dosage: 1 VIAL BID
     Dates: start: 20141203, end: 20141205
  47. AMIPAREN [Concomitant]
     Dosage: 1 VIAL
     Dates: start: 20141207
  48. PHYSIOLOGICAL SALINE [Concomitant]
     Dosage: UNK
  49. TAIMEC [Concomitant]
     Dosage: 40 ML, 4X/DAY
     Route: 048
     Dates: start: 20141020, end: 20141022
  50. MAGTECT [Concomitant]
     Dosage: 4 DF, 4X/DAY
     Route: 048
     Dates: start: 20141022, end: 20141106
  51. GLUCOSE H [Concomitant]
     Dosage: 0.5 KIT BID
     Dates: start: 20141015, end: 20141017
  52. ISOTONIC SODIUM CHLORIDE [Concomitant]
     Active Substance: SODIUM CHLORIDE
     Dosage: 1 VIAL
     Dates: start: 20141017, end: 20141023
  53. FESIN [Concomitant]
     Active Substance: IRON SUCROSE
     Dosage: 1 TUBE
     Dates: start: 20141206, end: 20141212
  54. FAMOTIDINE ^NISSIN^ [Concomitant]
     Dosage: UNK
     Dates: start: 20141127, end: 20141201
  55. PHENOBAL [Concomitant]
     Active Substance: PHENOBARBITAL
     Dosage: 1 TUBE
     Route: 030
     Dates: start: 20141102
  56. ELEMENMIC [Concomitant]
     Active Substance: CUPRIC SULFATE\FERRIC CHLORIDE\MANGANESE CHLORIDE\POTASSIUM IODIDE\ZINC SULFATE
     Dosage: 1 TUBE
     Dates: start: 20141201
  57. SOLITA-T NO.3 [Concomitant]
     Dosage: 1 VIAL
     Dates: start: 20141112, end: 20141126
  58. OTSUKA NORMAL SALINE [Concomitant]
     Dosage: 1 DF
     Dates: start: 20141205, end: 20141208
  59. CHLOR-TRIMETON [Concomitant]
     Active Substance: CHLORPHENIRAMINE MALEATE
     Dosage: 1 TUBE
     Dates: start: 20141121
  60. FOSPHENYTOIN SODIUM. [Suspect]
     Active Substance: FOSPHENYTOIN SODIUM
     Indication: SEIZURE
     Dosage: 375 MG, DAILY
     Route: 042
     Dates: start: 20141017, end: 20141020
  61. FOSPHENYTOIN SODIUM. [Suspect]
     Active Substance: FOSPHENYTOIN SODIUM
     Indication: EPILEPSY
     Dosage: 375 MG, DAILY
     Route: 042
     Dates: start: 20141031, end: 20141114
  62. CEFMETAZON [Concomitant]
     Active Substance: CEFMETAZOLE SODIUM
     Dosage: 1 VIAL BID
     Dates: start: 20141015, end: 20141017
  63. GLUCOSE H [Concomitant]
     Dosage: 0.5 KIT BID
     Dates: start: 20141117, end: 20141119
  64. ISOTONIC SODIUM CHLORIDE [Concomitant]
     Active Substance: SODIUM CHLORIDE
     Dosage: 1 VIAL
     Dates: start: 20141129, end: 20141129
  65. KCL [Concomitant]
     Active Substance: POTASSIUM CHLORIDE
     Dosage: UNK
     Dates: start: 20141127, end: 20141201
  66. OTSUKA GLUCOSE [Concomitant]
     Dosage: 1.6 DF
     Dates: start: 20141207
  67. THEO-DUR [Concomitant]
     Active Substance: THEOPHYLLINE ANHYDROUS
     Dosage: 1 G, 2X/DAY
     Route: 048
     Dates: start: 20141020, end: 20141102
  68. ISOTONIC SODIUM CHLORIDE [Concomitant]
     Active Substance: SODIUM CHLORIDE
     Dosage: 1 VIAL
     Dates: start: 20141031, end: 20141201
  69. KCL [Concomitant]
     Active Substance: POTASSIUM CHLORIDE
     Dosage: 0.5 KIT
     Dates: start: 20141017
  70. KCL [Concomitant]
     Active Substance: POTASSIUM CHLORIDE
     Dosage: 1 KIT
     Dates: start: 20141201
  71. FAMOTIDINE ^NISSIN^ [Concomitant]
     Dosage: 1 TUBE
     Dates: start: 20141116, end: 20141126
  72. MEDLENIK [Concomitant]
     Dosage: 1 TUBE
     Dates: start: 20141105, end: 20141105
  73. HEPAFLUSH [Concomitant]
     Dosage: 1 VIAL
     Dates: start: 20141201
  74. OTSUKA NORMAL SALINE [Concomitant]
     Dosage: 1 DF
     Dates: start: 20141201, end: 20141202
  75. OTSUKA GLUCOSE [Concomitant]
     Dosage: 1 DF, UNK
     Dates: start: 20141126
  76. OTSUKA GLUCOSE [Concomitant]
     Dosage: 1 DF
     Dates: start: 20141202, end: 20141205
  77. OXYGEN. [Concomitant]
     Active Substance: OXYGEN
     Dosage: UNK
     Route: 055
  78. AMBROXOL HYDROCHLORIDE [Concomitant]
     Active Substance: AMBROXOL HYDROCHLORIDE
     Dosage: 45 MG, 3X/DAY
     Route: 048
     Dates: start: 20141020, end: 20141102
  79. CEFMETAZON [Concomitant]
     Active Substance: CEFMETAZOLE SODIUM
     Dosage: 1 VIAL BID
     Dates: start: 20141117, end: 20141119
  80. ISOTONIC SODIUM CHLORIDE [Concomitant]
     Active Substance: SODIUM CHLORIDE
     Dosage: 1 VIAL
     Dates: start: 20141016, end: 20141021
  81. ISOTONIC SODIUM CHLORIDE [Concomitant]
     Active Substance: SODIUM CHLORIDE
     Dosage: 1 VIAL
     Dates: start: 20141105, end: 20141109

REACTIONS (9)
  - Haemoglobin decreased [Unknown]
  - Melaena [Unknown]
  - Generalised erythema [Recovering/Resolving]
  - Gamma-glutamyltransferase increased [Unknown]
  - Hepatic function abnormal [Unknown]
  - Hypoxia [Unknown]
  - Pyrexia [Unknown]
  - Gastrointestinal haemorrhage [Fatal]
  - Blood pressure decreased [Unknown]

NARRATIVE: CASE EVENT DATE: 20141121
